FAERS Safety Report 16302472 (Version 1)
Quarter: 2019Q2

REPORT INFORMATION
  Report Type: Spontaneous
  Country: AE (occurrence: AE)
  Receive Date: 20190513
  Receipt Date: 20190513
  Transmission Date: 20190711
  Serious: Yes (Hospitalization)
  Sender: FDA-Public Use
  Company Number: AE-AMGEN-ARESP2019073631

PATIENT
  Sex: Male

DRUGS (6)
  1. DARZALEX [Suspect]
     Active Substance: DARATUMUMAB
     Indication: PLASMA CELL MYELOMA REFRACTORY
     Dosage: 16 MILLIGRAM/KILOGRAM; ONE CYCLE
     Route: 042
     Dates: start: 2019, end: 201904
  2. DEXAMETHASONE. [Concomitant]
     Active Substance: DEXAMETHASONE
     Indication: PLASMA CELL MYELOMA REFRACTORY
     Dosage: 40 MILLIGRAM, QWK
     Dates: start: 201904
  3. LENALIDOMIDE [Concomitant]
     Active Substance: LENALIDOMIDE
     Indication: PLASMA CELL MYELOMA REFRACTORY
     Dosage: 25 MILLIGRAM; 1-21 DAYS
     Dates: start: 201904
  4. KYPROLIS [Suspect]
     Active Substance: CARFILZOMIB
     Dosage: 20 MILLIGRAM/SQ. METER; TWICE WEEKLY
     Route: 042
     Dates: start: 201904, end: 2019
  5. KYPROLIS [Suspect]
     Active Substance: CARFILZOMIB
     Dosage: UNK UNK, QWK
     Route: 042
     Dates: start: 2019
  6. KYPROLIS [Suspect]
     Active Substance: CARFILZOMIB
     Indication: PLASMA CELL MYELOMA REFRACTORY
     Dosage: 27 MILLIGRAM/SQ. METER; TWICE WEEKLY
     Route: 042
     Dates: start: 201904, end: 201904

REACTIONS (3)
  - Dyspnoea [Recovered/Resolved]
  - Ejection fraction abnormal [Recovered/Resolved]
  - Off label use [Unknown]

NARRATIVE: CASE EVENT DATE: 2019
